FAERS Safety Report 8214484-4 (Version None)
Quarter: 2012Q1

REPORT INFORMATION
  Report Type: 
  Country: None (occurrence: None)
  Receive Date: 20120316
  Receipt Date: 20120316
  Transmission Date: 20120608
  Serious: No
  Sender: FDA-Public Use
  Company Number: None

PATIENT
  Sex: Female
  Weight: 85.728 kg

DRUGS (1)
  1. ZICAM NO DRIP LIQUID NASAL GEL [Suspect]
     Indication: NASOPHARYNGITIS
     Dosage: 1 SWAB
     Dates: start: 20080101, end: 20110531

REACTIONS (5)
  - AGEUSIA [None]
  - ANOSMIA [None]
  - NASOPHARYNGITIS [None]
  - TREATMENT NONCOMPLIANCE [None]
  - PRODUCT QUALITY ISSUE [None]
